FAERS Safety Report 4864813-4 (Version None)
Quarter: 2005Q4

REPORT INFORMATION
  Report Type: 
  Country: None (occurrence: None)
  Receive Date: 20051201
  Receipt Date: 20050706
  Transmission Date: 20060501
  Serious: No
  Sender: FDA-Public Use
  Company Number: 2005PV000271

PATIENT
  Age: 54 Year
  Sex: Male
  Weight: 131.5431 kg

DRUGS (6)
  1. BYETTA [Suspect]
     Indication: DIABETES MELLITUS NON-INSULIN-DEPENDENT
     Dosage: 5 MCG; BID; SC ; 10 MCG; BID; SC
     Route: 058
     Dates: start: 20050607, end: 20050630
  2. BYETTA [Suspect]
     Indication: DIABETES MELLITUS NON-INSULIN-DEPENDENT
     Dosage: 5 MCG; BID; SC ; 10 MCG; BID; SC
     Route: 058
     Dates: start: 20050701, end: 20050801
  3. BYETTA [Suspect]
     Indication: DIABETES MELLITUS NON-INSULIN-DEPENDENT
     Dosage: 5 MCG; BID; SC ; 10 MCG; BID; SC
     Route: 058
     Dates: start: 20050901
  4. HYDROCHLOROTHIAZIDE [Concomitant]
  5. ATACAND [Concomitant]
  6. ALLOPURINOL [Concomitant]

REACTIONS (8)
  - ASTHENIA [None]
  - BLOOD GLUCOSE INCREASED [None]
  - CONDITION AGGRAVATED [None]
  - DECREASED APPETITE [None]
  - ENERGY INCREASED [None]
  - NAUSEA [None]
  - PAIN IN EXTREMITY [None]
  - WEIGHT DECREASED [None]
